FAERS Safety Report 19043075 (Version 1)
Quarter: 2021Q1

REPORT INFORMATION
  Report Type: Spontaneous
  Country: US (occurrence: US)
  Receive Date: 20210322
  Receipt Date: 20210322
  Transmission Date: 20210420
  Serious: Yes (Other)
  Sender: FDA-Public Use
  Company Number: None

PATIENT
  Age: 47 Year
  Sex: Male
  Weight: 88.45 kg

DRUGS (1)
  1. GLATIRAMER ACETATE 20MG [Suspect]
     Active Substance: GLATIRAMER ACETATE
     Indication: MULTIPLE SCLEROSIS
     Route: 058
     Dates: start: 20190301

REACTIONS (6)
  - Arthralgia [None]
  - Body mass index decreased [None]
  - Asthenia [None]
  - Cognitive disorder [None]
  - Gait inability [None]
  - Hypoaesthesia [None]

NARRATIVE: CASE EVENT DATE: 20190301
